FAERS Safety Report 19151748 (Version 1)
Quarter: 2021Q2

REPORT INFORMATION
  Report Type: Report from Study
  Country: None (occurrence: US)
  Receive Date: 20210419
  Receipt Date: 20210419
  Transmission Date: 20210717
  Serious: Yes (Hospitalization, Other)
  Sender: FDA-Public Use
  Company Number: US-ABBVIE-21K-163-3850840-00

PATIENT
  Age: 57 Year
  Sex: Female
  Weight: 95.34 kg

DRUGS (2)
  1. HUMIRA [Suspect]
     Active Substance: ADALIMUMAB
     Indication: RHEUMATOID ARTHRITIS
     Route: 058
     Dates: start: 2002, end: 202011
  2. PREDNISONE. [Concomitant]
     Active Substance: PREDNISONE
     Indication: ARTHRITIS

REACTIONS (9)
  - Arthralgia [Recovering/Resolving]
  - Asthenia [Recovered/Resolved]
  - Pulmonary congestion [Unknown]
  - Loss of consciousness [Recovered/Resolved]
  - Musculoskeletal chest pain [Recovering/Resolving]
  - Decreased appetite [Recovered/Resolved]
  - Transient ischaemic attack [Not Recovered/Not Resolved]
  - Weight decreased [Recovering/Resolving]
  - COVID-19 [Not Recovered/Not Resolved]

NARRATIVE: CASE EVENT DATE: 202011
